FAERS Safety Report 18550097 (Version 1)
Quarter: 2020Q4

REPORT INFORMATION
  Report Type: Spontaneous
  Country: AT (occurrence: AT)
  Receive Date: 20201126
  Receipt Date: 20201126
  Transmission Date: 20210114
  Serious: Yes (Hospitalization)
  Sender: FDA-Public Use
  Company Number: AT-PFIZER INC-2020462513

PATIENT
  Age: 48 Year
  Sex: Female

DRUGS (3)
  1. AROMASIN [Suspect]
     Active Substance: EXEMESTANE
     Dosage: UNK
  2. THYREX [Concomitant]
     Active Substance: LEVOTHYROXINE SODIUM
     Dosage: 50UG AND 25UG ALTERNATING
  3. AFINITOR [Suspect]
     Active Substance: EVEROLIMUS
     Dosage: UNK

REACTIONS (3)
  - Cardiotoxicity [Not Recovered/Not Resolved]
  - Prohormone brain natriuretic peptide increased [Unknown]
  - Troponin T increased [Unknown]

NARRATIVE: CASE EVENT DATE: 20201104
